FAERS Safety Report 24933971 (Version 1)
Quarter: 2025Q1

REPORT INFORMATION
  Report Type: Spontaneous
  Country: IT (occurrence: IT)
  Receive Date: 20250206
  Receipt Date: 20250206
  Transmission Date: 20250409
  Serious: Yes (Other)
  Sender: EXELIXIS
  Company Number: None

PATIENT
  Age: 51 Year
  Sex: Male

DRUGS (12)
  1. CABOMETYX [Suspect]
     Active Substance: CABOZANTINIB S-MALATE
     Indication: Clear cell renal cell carcinoma
     Dosage: 60 MG, QD
     Route: 048
     Dates: start: 202010, end: 202011
  2. CABOMETYX [Suspect]
     Active Substance: CABOZANTINIB S-MALATE
     Dosage: 40 MG, QD
     Route: 048
     Dates: start: 202011, end: 202403
  3. XGEVA [Suspect]
     Active Substance: DENOSUMAB
     Indication: Metastases to bone
     Dosage: XGEVA STARTED IN JANUARY 2021, 120 MG EVERY 4 WEEKS CONTINUED FOR ONE AND A HALF YEARS, DISCONTINUED
     Route: 058
     Dates: start: 202101, end: 202206
  4. ACETAMINOPHEN [Concomitant]
     Active Substance: ACETAMINOPHEN
     Dosage: 2 G, QD [1000 MG / 2 TABLETS PER DAY]
  5. CANRENONE [Concomitant]
     Active Substance: CANRENONE
     Dosage: 1 {DF}, QD
     Route: 048
  6. NEBIVOLOL HYDROCHLORIDE [Concomitant]
     Active Substance: NEBIVOLOL HYDROCHLORIDE
     Indication: Hypertension
     Dosage: 1 {DF}, QD
     Route: 048
     Dates: start: 202101, end: 202403
  7. NEBIVOLOL HYDROCHLORIDE [Concomitant]
     Active Substance: NEBIVOLOL HYDROCHLORIDE
     Route: 048
  8. CANDESARTAN CILEXETIL [Concomitant]
     Active Substance: CANDESARTAN CILEXETIL
     Route: 048
  9. NALOXONE HYDROCHLORIDE\OXYCODONE HYDROCHLORIDE [Concomitant]
     Active Substance: NALOXONE HYDROCHLORIDE\OXYCODONE HYDROCHLORIDE
     Indication: Cancer pain
     Dosage: 4 {DF}, QD
     Route: 048
  10. EDOXABAN TOSYLATE [Concomitant]
     Active Substance: EDOXABAN TOSYLATE
     Indication: Pulmonary embolism
     Dosage: 60 MG, QD
     Route: 048
     Dates: start: 202101
  11. LASIX [Concomitant]
     Active Substance: FUROSEMIDE
     Route: 048
  12. NORVASC [Concomitant]
     Active Substance: AMLODIPINE BESYLATE
     Dosage: 5MG TWO TABLETS PER DAY
     Route: 048
     Dates: start: 202011, end: 202403

REACTIONS (1)
  - Osteonecrosis of jaw [Not Recovered/Not Resolved]

NARRATIVE: CASE EVENT DATE: 20220601
